FAERS Safety Report 6213457-0 (Version None)
Quarter: 2009Q2

REPORT INFORMATION
  Report Type: 
  Country: None (occurrence: None)
  Receive Date: 20090601
  Receipt Date: 20090305
  Transmission Date: 20091009
  Serious: Yes (Other)
  Sender: FDA-Public Use
  Company Number: 8046793

PATIENT
  Sex: Female
  Weight: 55 kg

DRUGS (2)
  1. KEPPRA [Suspect]
     Indication: EPILEPSY
  2. TOPAMAX [Concomitant]

REACTIONS (5)
  - DEPRESSION [None]
  - MENTAL DISORDER [None]
  - PANIC ATTACK [None]
  - SUICIDAL IDEATION [None]
  - WEIGHT DECREASED [None]
